FAERS Safety Report 4699562-9 (Version None)
Quarter: 2005Q2

REPORT INFORMATION
  Report Type: 
  Country: None (occurrence: None)
  Receive Date: 20050623
  Receipt Date: 20050613
  Transmission Date: 20051028
  Serious: Yes (Death)
  Sender: FDA-Public Use
  Company Number: FRWYE739213JUN05

PATIENT
  Age: 38 Year
  Sex: Male

DRUGS (6)
  1. TAZOCILLINE (PIPERACILLIN/TAZOBACTAM, INJECTION) [Suspect]
     Indication: ABDOMINAL INFECTION
     Dosage: INTRAVENOUS
     Route: 042
     Dates: start: 20050503, end: 20050503
  2. MEPRONIZINE (ACEPROMETAZINE/MEPROBAMATE) [Concomitant]
  3. INSULATARD NPH HUMAN [Concomitant]
  4. VITAMIN B1 AND B6 (PYRIDOXINE/THIAMINE) [Concomitant]
  5. TRANXENE [Concomitant]
  6. SUBUTEX [Concomitant]

REACTIONS (6)
  - ANAPHYLACTIC SHOCK [None]
  - AREFLEXIA [None]
  - BRAIN OEDEMA [None]
  - CARDIO-RESPIRATORY ARREST [None]
  - ELECTROCARDIOGRAM CHANGE [None]
  - MYDRIASIS [None]
